FAERS Safety Report 5848718-8 (Version None)
Quarter: 2008Q3

REPORT INFORMATION
  Report Type: 
  Country: None (occurrence: None)
  Receive Date: 20080818
  Receipt Date: 20080811
  Transmission Date: 20090109
  Serious: No
  Sender: FDA-Public Use
  Company Number: US-BOEHRINGER INGELHEIM GMBH, GERMANY-2008-BP-11698BP

PATIENT
  Sex: Male

DRUGS (10)
  1. FLOMAX [Suspect]
     Indication: BENIGN PROSTATIC HYPERPLASIA
     Route: 048
     Dates: start: 20080705
  2. FLOMAX [Suspect]
     Indication: URINARY TRACT DISORDER
  3. AVODART [Suspect]
     Indication: BENIGN PROSTATIC HYPERPLASIA
     Dates: start: 20080705
  4. ASACOL [Concomitant]
     Indication: COLITIS
  5. PRILOSEC [Concomitant]
     Indication: GASTROOESOPHAGEAL REFLUX DISEASE
  6. ASPIRIN [Concomitant]
     Indication: CARDIOVASCULAR EVENT PROPHYLAXIS
  7. PYRIDIUM [Concomitant]
     Indication: DYSURIA
  8. SAW PALMETTO [Concomitant]
     Indication: DYSURIA
  9. FLORASTOR [Concomitant]
     Indication: DYSURIA
  10. CAPAXONE [Concomitant]

REACTIONS (2)
  - DIZZINESS [None]
  - EJACULATION FAILURE [None]
